FAERS Safety Report 10313799 (Version 1)
Quarter: 2014Q3

REPORT INFORMATION
  Report Type: Spontaneous
  Country: JP (occurrence: JP)
  Receive Date: 20140718
  Receipt Date: 20140718
  Transmission Date: 20150326
  Serious: Yes (Other)
  Sender: FDA-Public Use
  Company Number: JP-PFIZER INC-2014200394

PATIENT
  Age: 4 Decade
  Sex: Female

DRUGS (3)
  1. INTEBAN [Suspect]
     Active Substance: INDOMETHACIN
     Indication: COLORECTAL CANCER
     Dosage: UNK
  2. AVASTIN [Suspect]
     Active Substance: BEVACIZUMAB
     Indication: COLORECTAL CANCER
     Dosage: UNK
     Route: 041
  3. ZOSYN [Suspect]
     Active Substance: PIPERACILLIN SODIUM\TAZOBACTAM SODIUM
     Indication: FEBRILE NEUTROPENIA
     Route: 042

REACTIONS (2)
  - Off label use [Unknown]
  - Pneumonitis [Recovered/Resolved]
